FAERS Safety Report 4522632-2 (Version None)
Quarter: 2004Q4

REPORT INFORMATION
  Report Type: 
  Country: None (occurrence: None)
  Receive Date: 20041207
  Receipt Date: 20041130
  Transmission Date: 20050328
  Serious: Yes (Other)
  Sender: FDA-Public Use
  Company Number: EM2004-0567

PATIENT
  Age: 56 Year
  Sex: Female

DRUGS (5)
  1. PROLEUKIN [Suspect]
     Indication: RENAL CELL CARCINOMA STAGE UNSPECIFIED
     Dosage: SEE IMAGE
     Route: 042
  2. INTERFERON ALFA (INTERFERON ALFA) [Concomitant]
  3. CORTICOSTEROIDS (CORTICOSTEROIDS) [Concomitant]
  4. ANTIHYPERTENSIVES [Concomitant]
  5. INSULIN [Concomitant]

REACTIONS (6)
  - APLASTIC ANAEMIA [None]
  - ASPARTATE AMINOTRANSFERASE INCREASED [None]
  - BLOOD LACTATE DEHYDROGENASE INCREASED [None]
  - CHROMATURIA [None]
  - HAEMOLYTIC ANAEMIA [None]
  - PALPITATIONS [None]
